FAERS Safety Report 19388266 (Version 1)
Quarter: 2021Q2

REPORT INFORMATION
  Report Type: Spontaneous
  Country: US (occurrence: US)
  Receive Date: 20210607
  Receipt Date: 20210607
  Transmission Date: 20210717
  Serious: No
  Sender: FDA-Public Use
  Company Number: None

PATIENT
  Age: 52 Year
  Sex: Female
  Weight: 63.9 kg

DRUGS (3)
  1. SOOTHE PRESERVATIVE FREE LUBRICANT EYE DROPS (GLYCERIN\PROPYLENE GLYCOL) [Suspect]
     Active Substance: GLYCERIN\PROPYLENE GLYCOL
     Indication: DRY EYE
     Dates: start: 20210510, end: 20210512
  2. SYNTHROID [Concomitant]
     Active Substance: LEVOTHYROXINE SODIUM
  3. MULTIVITAMINS [Concomitant]
     Active Substance: VITAMINS

REACTIONS (3)
  - Ocular hyperaemia [None]
  - Ocular discomfort [None]
  - Eye allergy [None]

NARRATIVE: CASE EVENT DATE: 20210520
